FAERS Safety Report 11348750 (Version 1)
Quarter: 2015Q3

REPORT INFORMATION
  Report Type: Report from Study
  Country: BR (occurrence: BR)
  Receive Date: 20150806
  Receipt Date: 20150806
  Transmission Date: 20151125
  Serious: Yes (Hospitalization, Other)
  Sender: FDA-Public Use
  Company Number: BR-ABBVIE-15K-020-1428129-00

PATIENT
  Age: 62 Year
  Sex: Female
  Weight: 74 kg

DRUGS (7)
  1. HUMIRA [Suspect]
     Active Substance: ADALIMUMAB
     Route: 058
     Dates: start: 201505
  2. LOSARTAN. [Concomitant]
     Active Substance: LOSARTAN
     Indication: HYPERTENSION
     Route: 048
     Dates: start: 201504
  3. ATENOLOL. [Concomitant]
     Active Substance: ATENOLOL
     Indication: HYPERTENSION
     Route: 048
     Dates: start: 201504
  4. HUMIRA [Suspect]
     Active Substance: ADALIMUMAB
     Indication: PSORIASIS
     Route: 058
     Dates: start: 20130104, end: 201504
  5. BROMAZEPAM [Concomitant]
     Active Substance: BROMAZEPAM
     Indication: INSOMNIA
  6. FLUOXETINE [Concomitant]
     Active Substance: FLUOXETINE\FLUOXETINE HYDROCHLORIDE
     Indication: DEPRESSION
     Route: 048
     Dates: start: 2003
  7. BROMAZEPAM [Concomitant]
     Active Substance: BROMAZEPAM
     Indication: NEUROPATHY PERIPHERAL
     Route: 048
     Dates: start: 2003

REACTIONS (9)
  - Gallbladder disorder [Recovered/Resolved]
  - Nervousness [Recovering/Resolving]
  - Abdominal pain [Recovered/Resolved]
  - Hepatic steatosis [Unknown]
  - Appendix disorder [Recovered/Resolved]
  - Vomiting [Recovered/Resolved]
  - Psoriasis [Recovering/Resolving]
  - Surgery [Unknown]
  - Rash generalised [Unknown]

NARRATIVE: CASE EVENT DATE: 201506
